FAERS Safety Report 5047827-3 (Version None)
Quarter: 2006Q3

REPORT INFORMATION
  Report Type: 
  Country: None (occurrence: None)
  Receive Date: 20060710
  Receipt Date: 20060710
  Transmission Date: 20061208
  Serious: Yes (Hospitalization)
  Sender: FDA-Public Use
  Company Number: None

PATIENT
  Sex: Male
  Weight: 83.5 kg

DRUGS (1)
  1. FORMOTEROL 12 MCG SCHERING [Suspect]
     Indication: ASTHMA
     Dosage: ONE CAPSULE BID PO
     Route: 048
     Dates: start: 20050225, end: 20060301

REACTIONS (2)
  - ASTHMA [None]
  - DYSGEUSIA [None]
